FAERS Safety Report 4501068-4 (Version None)
Quarter: 2004Q4

REPORT INFORMATION
  Report Type: 
  Country: None (occurrence: None)
  Receive Date: 20041110
  Receipt Date: 20041029
  Transmission Date: 20050328
  Serious: Yes (Other)
  Sender: FDA-Public Use
  Company Number: 2004085205

PATIENT
  Age: 61 Year
  Sex: Female
  Weight: 83.4619 kg

DRUGS (11)
  1. ZANTAC 75 [Suspect]
     Indication: ULCER
     Dosage: 2 TABLETS QT, ORAL
     Route: 048
  2. OMEPRAZOLE [Concomitant]
  3. DYAZIDE [Concomitant]
  4. PRAVASTATIN SODIUM [Concomitant]
  5. LEVOSALBUTAMOL (LEVOSALBUTAMOL) [Concomitant]
  6. MONTELUKAST SODIUM (MONTELUKAST SODIUM) [Concomitant]
  7. TRIOBE (CYANOCOBALAMIN, FOLIC ACID, PIRIDOXINE) [Concomitant]
  8. MULTIVITAMINS (ASCORBIC ACID, ERGOCALCIFEROL, FOLIC ACID, NICONITAMIDE [Concomitant]
  9. CALCIUM (CALCIUM) [Concomitant]
  10. ALENDRONATE SODIUM [Concomitant]
  11. OTHER ANTI-ASTHMATICS, INHALANTS (OTHER ANTI-ASTHMATICS, INHALANTS) [Concomitant]

REACTIONS (1)
  - LUNG NEOPLASM MALIGNANT [None]
